FAERS Safety Report 21028379 (Version 1)
Quarter: 2022Q2

REPORT INFORMATION
  Report Type: Report from Study
  Country: KR (occurrence: KR)
  Receive Date: 20220630
  Receipt Date: 20220630
  Transmission Date: 20220721
  Serious: Yes (Hospitalization)
  Sender: FDA-Public Use
  Company Number: KR-ELI_LILLY_AND_COMPANY-KR202206013928

PATIENT
  Age: 75 Year
  Sex: Female
  Weight: 34.5 kg

DRUGS (7)
  1. BARICITINIB [Suspect]
     Active Substance: BARICITINIB
     Indication: Rheumatoid arthritis
     Dosage: 2 MG, DAILY
     Dates: start: 20220502
  2. METHYLON [METHYLPREDNISOLONE] [Concomitant]
     Indication: Rheumatoid arthritis
     Dosage: UNK
     Dates: start: 20200916
  3. ARCOXIA [Concomitant]
     Active Substance: ETORICOXIB
     Indication: Rheumatoid arthritis
     Dosage: UNK
     Dates: start: 20200916
  4. REBAMIPIDE [Concomitant]
     Active Substance: REBAMIPIDE
     Indication: Prophylaxis
     Dosage: UNK
     Dates: start: 20220307
  5. POLYBUTINE [TRIMEBUTINE] [Concomitant]
     Indication: Gastritis
     Dosage: UNK
     Dates: start: 20210222
  6. ESODUO [Concomitant]
     Indication: Gastritis
     Dosage: UNK
     Dates: start: 20201221
  7. DOMPERIDONE [Concomitant]
     Active Substance: DOMPERIDONE
     Indication: Gastritis
     Dosage: UNK
     Dates: start: 20220307

REACTIONS (2)
  - Vomiting [Recovered/Resolved]
  - Abdominal pain [Recovered/Resolved]

NARRATIVE: CASE EVENT DATE: 20220609
